FAERS Safety Report 18841429 (Version 6)
Quarter: 2022Q2

REPORT INFORMATION
  Report Type: Report from Study
  Country: US (occurrence: US)
  Receive Date: 20210203
  Receipt Date: 20220609
  Transmission Date: 20220720
  Serious: Yes (Other)
  Sender: FDA-Public Use
  Company Number: US-TAKEDA-US201942808

PATIENT
  Sex: Female

DRUGS (2)
  1. HUMAN IMMUNOGLOBULIN G [Suspect]
     Active Substance: HUMAN IMMUNOGLOBULIN G
     Indication: Primary immunodeficiency syndrome
     Dosage: UNK UNK, Q2WEEKS
     Route: 058
  2. HUMAN IMMUNOGLOBULIN G [Suspect]
     Active Substance: HUMAN IMMUNOGLOBULIN G
     Indication: Immunodeficiency common variable
     Dosage: UNK
     Route: 065

REACTIONS (13)
  - Impaired gastric emptying [Unknown]
  - Autoimmune disorder [Unknown]
  - Influenza [Unknown]
  - Malaise [Unknown]
  - COVID-19 [Unknown]
  - Infusion site mass [Not Recovered/Not Resolved]
  - Infusion site haemorrhage [Unknown]
  - Inappropriate schedule of product administration [Unknown]
  - Wrong technique in device usage process [Unknown]
  - Incorrect dose administered [Unknown]
  - Exposure during pregnancy [Unknown]
  - Immunoglobulins decreased [Unknown]
  - Infection [Unknown]
